FAERS Safety Report 5403159-2 (Version None)
Quarter: 2007Q3

REPORT INFORMATION
  Report Type: 
  Country: None (occurrence: None)
  Receive Date: 20070801
  Receipt Date: 20070720
  Transmission Date: 20080115
  Serious: Yes (Other)
  Sender: FDA-Public Use
  Company Number: US-PFIZER INC-2007060471

PATIENT
  Sex: Male

DRUGS (5)
  1. ZOLOFT [Suspect]
     Indication: MAJOR DEPRESSION
     Dosage: DAILY DOSE:200MG
  2. SYNTHROID [Concomitant]
  3. PLAVIX [Concomitant]
  4. TRICOR [Concomitant]
  5. VITAMIN CAP [Concomitant]

REACTIONS (4)
  - HAEMOCHROMATOSIS [None]
  - LYMPHOCYTE COUNT DECREASED [None]
  - MONOCYTE COUNT INCREASED [None]
  - NEUTROPHIL COUNT INCREASED [None]
